FAERS Safety Report 7587623-6 (Version None)
Quarter: 2011Q3

REPORT INFORMATION
  Report Type: 
  Country: None (occurrence: None)
  Receive Date: 20110704
  Receipt Date: 20110620
  Transmission Date: 20111222
  Serious: Yes (Hospitalization)
  Sender: FDA-Public Use
  Company Number: PHHY2011FR54626

PATIENT
  Sex: Female

DRUGS (11)
  1. KALEORID [Concomitant]
     Indication: MUSCLE SPASMS
     Dosage: UNK
  2. NEORAL [Suspect]
     Dosage: 100 MG, UNK
     Dates: start: 20110611, end: 20110613
  3. CODOLIPRANE [Concomitant]
     Dosage: UNK
  4. SPASFON [Concomitant]
     Dosage: UNK
  5. CORTICOIDS [Concomitant]
     Dosage: UNK
  6. NEORAL [Suspect]
     Dosage: 125 MG, UNK
     Dates: start: 20110530, end: 20110610
  7. DEBRIDAT [Concomitant]
     Dosage: UNK
  8. LASIX [Concomitant]
     Dosage: 250 MG
  9. KALEORID [Concomitant]
     Indication: HYPOKALAEMIA
  10. LEXOMIL [Concomitant]
     Dosage: UNK
  11. NEORAL [Suspect]
     Indication: NEPHROTIC SYNDROME
     Dosage: UNK
     Dates: start: 20010101

REACTIONS (7)
  - HYPERPROTEINAEMIA [None]
  - WEIGHT DECREASED [None]
  - NEPHROTIC SYNDROME [None]
  - PROTEINURIA [None]
  - URINARY INCONTINENCE [None]
  - HYPOPROTEINAEMIA [None]
  - EMOTIONAL DISORDER [None]
